FAERS Safety Report 18030692 (Version 3)
Quarter: 2020Q4

REPORT INFORMATION
  Report Type: Spontaneous
  Country: US (occurrence: US)
  Receive Date: 20200715
  Receipt Date: 20201014
  Transmission Date: 20210113
  Serious: Yes (Other)
  Sender: FDA-Public Use
  Company Number: US-GILEAD-2020-0483267

PATIENT
  Age: 55 Year
  Sex: Male
  Weight: 121 kg

DRUGS (35)
  1. INSULIN REGULAR HM [Concomitant]
     Active Substance: INSULIN NOS
     Dosage: UNK
     Route: 058
     Dates: start: 20200708, end: 20200710
  2. INSULIN HUMAN [Concomitant]
     Active Substance: INSULIN HUMAN
     Dosage: UNK
     Route: 058
     Dates: start: 20200707, end: 20200708
  3. SODIUM CHLORIDE. [Concomitant]
     Active Substance: SODIUM CHLORIDE
  4. ZITHROMAX [Concomitant]
     Active Substance: AZITHROMYCIN DIHYDRATE
     Dosage: 500 UNK
     Route: 048
     Dates: start: 20200704, end: 20200704
  5. HYDRALAZINE [Concomitant]
     Active Substance: HYDRALAZINE HYDROCHLORIDE
     Dosage: Q6H PRN
     Route: 042
     Dates: start: 20200705, end: 20200710
  6. NORVASC [Concomitant]
     Active Substance: AMLODIPINE BESYLATE
     Dosage: 10 MG, QD
     Route: 050
     Dates: start: 20200705, end: 20200710
  7. INSULIN NPH [INSULIN ISOPHANE BOVINE] [Concomitant]
     Dosage: 20 UNITS
     Route: 058
     Dates: start: 20200709, end: 20200710
  8. INSULIN HUMAN [Concomitant]
     Active Substance: INSULIN HUMAN
     Dosage: UNK
  9. ALBUTEROL SULFATE. [Concomitant]
     Active Substance: ALBUTEROL SULFATE
     Dosage: UNK UNK, Q4HR, PRN
     Route: 055
     Dates: start: 20200704, end: 20200710
  10. INSULIN NPH [INSULIN ISOPHANE BOVINE] [Concomitant]
     Dosage: 25 UNITS
     Route: 058
     Dates: start: 20200710, end: 20200710
  11. INSULIN NPH [INSULIN ISOPHANE BOVINE] [Concomitant]
     Dosage: UNK
     Route: 058
     Dates: start: 20200708, end: 20200709
  12. INSULIN REGULAR HM [Concomitant]
     Active Substance: INSULIN NOS
     Dosage: UNK
     Route: 058
     Dates: start: 20200704, end: 20200705
  13. ROCEPHINE [Concomitant]
     Active Substance: CEFTRIAXONE SODIUM
     Dosage: 1 UNK
     Route: 042
     Dates: start: 20200704, end: 20200704
  14. DEXTROSE. [Concomitant]
     Active Substance: DEXTROSE
     Dosage: UNK
     Route: 048
     Dates: start: 20200705, end: 20200710
  15. TYLENOL [Concomitant]
     Active Substance: ACETAMINOPHEN
     Dosage: 650 MG
     Route: 050
     Dates: start: 20200704, end: 20200704
  16. REMDESIVIR. [Suspect]
     Active Substance: REMDESIVIR
     Indication: COVID-19
     Dosage: 200 MG, ONCE
     Route: 042
     Dates: start: 20200705, end: 20200705
  17. PANTOPRAZOLE [Concomitant]
     Active Substance: PANTOPRAZOLE
     Dosage: 40 MG, QD
     Route: 048
     Dates: start: 20200706, end: 20200710
  18. GLYBURIDE. [Concomitant]
     Active Substance: GLYBURIDE
     Dosage: 2.5 MG, QD
     Route: 048
     Dates: start: 20200705, end: 20200705
  19. LOVENOX [Concomitant]
     Active Substance: ENOXAPARIN SODIUM
     Dosage: 40 MG, BID
     Route: 058
     Dates: start: 20200704, end: 20200705
  20. OXYGEN. [Concomitant]
     Active Substance: OXYGEN
  21. APIXABAN [Concomitant]
     Active Substance: APIXABAN
     Dosage: 5 MG, BID
     Route: 050
     Dates: start: 20200707, end: 20200710
  22. PANTOPRAZOLE [Concomitant]
     Active Substance: PANTOPRAZOLE
     Dosage: 40 MG, BID
     Route: 048
     Dates: start: 20200704, end: 20200705
  23. ROCEPHINE [Concomitant]
     Active Substance: CEFTRIAXONE SODIUM
     Dosage: 1 G, QD
     Route: 042
     Dates: start: 20200705, end: 20200705
  24. LOVENOX [Concomitant]
     Active Substance: ENOXAPARIN SODIUM
     Dosage: 120 MG, Q12H
     Route: 058
     Dates: start: 20200705, end: 20200707
  25. REMDESIVIR. [Suspect]
     Active Substance: REMDESIVIR
     Dosage: 100 MG, QD
     Route: 042
     Dates: start: 20200706, end: 20200709
  26. INSULIN LISPRO [Concomitant]
     Active Substance: INSULIN LISPRO
     Dosage: UNK
     Route: 058
     Dates: start: 20200705, end: 20200708
  27. INSULIN GLARGINE [Concomitant]
     Active Substance: INSULIN GLARGINE
  28. ZITHROMAX [Concomitant]
     Active Substance: AZITHROMYCIN DIHYDRATE
     Dosage: 250 MG, QD
     Route: 042
     Dates: start: 20200705, end: 20200705
  29. DEXAMETHASONE. [Concomitant]
     Active Substance: DEXAMETHASONE
     Dosage: 6 MG, QD
     Route: 042
     Dates: start: 20200705, end: 20200710
  30. GLUCAGEN [GLUCAGON] [Concomitant]
     Dosage: 1 MG
     Route: 030
     Dates: start: 20200705, end: 20200710
  31. DEXTROSE IN WATER [Concomitant]
     Active Substance: DEXTROSE\WATER
     Dosage: UNK
     Dates: start: 20200705, end: 20200710
  32. MUPIROCIN. [Concomitant]
     Active Substance: MUPIROCIN
     Dosage: 1 APPLIC BID
     Route: 045
     Dates: start: 20200704, end: 20200705
  33. PLASMA-LYTE A [Concomitant]
     Active Substance: MAGNESIUM CHLORIDE\POTASSIUM CHLORIDE\SODIUM ACETATE\SODIUM CHLORIDE\SODIUM GLUCONATE
     Dosage: 500 ML
     Dates: start: 20200704, end: 20200705
  34. POTASSIUM CHLORIDE. [Concomitant]
     Active Substance: POTASSIUM CHLORIDE
     Dosage: 40 MEQ, ONCE
     Route: 048
     Dates: start: 20200710, end: 20200710
  35. POTASSIUM CHLORIDE. [Concomitant]
     Active Substance: POTASSIUM CHLORIDE
     Dosage: 40 MEQ, Q4HR
     Route: 048
     Dates: start: 20200705, end: 20200705

REACTIONS (1)
  - Alanine aminotransferase increased [Unknown]

NARRATIVE: CASE EVENT DATE: 20200708
